FAERS Safety Report 17023067 (Version 2)
Quarter: 2019Q4

REPORT INFORMATION
  Report Type: Spontaneous
  Country: RU (occurrence: RU)
  Receive Date: 20191112
  Receipt Date: 20191117
  Transmission Date: 20200122
  Serious: Yes (Hospitalization)
  Sender: FDA-Public Use
  Company Number: RU-ELI_LILLY_AND_COMPANY-RU201911000407

PATIENT
  Age: 29 Year
  Sex: Female

DRUGS (1)
  1. STRATTERA [Suspect]
     Active Substance: ATOMOXETINE HYDROCHLORIDE
     Indication: ATTENTION DEFICIT/HYPERACTIVITY DISORDER
     Dosage: 20 MG, BID
     Route: 048
     Dates: start: 20190820

REACTIONS (7)
  - Endometriosis [Recovered/Resolved]
  - Ovarian disorder [Recovered/Resolved]
  - Monocyte count increased [Unknown]
  - Blood cholesterol increased [Unknown]
  - Haemoglobin increased [Unknown]
  - Uterine leiomyoma [Recovered/Resolved]
  - Blood fibrinogen increased [Unknown]

NARRATIVE: CASE EVENT DATE: 20190905
